FAERS Safety Report 16630179 (Version 1)
Quarter: 2019Q3

REPORT INFORMATION
  Report Type: Spontaneous
  Country: US (occurrence: US)
  Receive Date: 20190725
  Receipt Date: 20190725
  Transmission Date: 20191004
  Serious: No
  Sender: FDA-Public Use
  Company Number: US-GLENMARK PHARMACEUTICALS-2019GMK041587

PATIENT
  Sex: Female

DRUGS (1)
  1. CLOTRIMAZOLE. [Suspect]
     Active Substance: CLOTRIMAZOLE
     Indication: EAR PAIN
     Dosage: UNK, BID
     Route: 061

REACTIONS (1)
  - Product use in unapproved indication [Unknown]
